FAERS Safety Report 8483621-9 (Version None)
Quarter: 2012Q3

REPORT INFORMATION
  Report Type: 
  Country: None (occurrence: None)
  Receive Date: 20120702
  Receipt Date: 20120619
  Transmission Date: 20120928
  Serious: Yes (Death, Other)
  Sender: FDA-Public Use
  Company Number: FR-ROCHE-1064914

PATIENT
  Age: 17 Year
  Sex: Male

DRUGS (1)
  1. ISOTRETINOIN [Suspect]
     Indication: ACNE
     Dates: start: 19991001, end: 20000101

REACTIONS (8)
  - DEPRESSION [None]
  - DRY EYE [None]
  - OBSESSIVE-COMPULSIVE DISORDER [None]
  - CHEILITIS [None]
  - LACRIMATION INCREASED [None]
  - LIP DRY [None]
  - HYPERTRICHOSIS [None]
  - COMPLETED SUICIDE [None]
